FAERS Safety Report 7486187-5 (Version None)
Quarter: 2011Q2

REPORT INFORMATION
  Report Type: 
  Country: None (occurrence: None)
  Receive Date: 20110517
  Receipt Date: 20110405
  Transmission Date: 20111010
  Serious: Yes (Other)
  Sender: FDA-Public Use
  Company Number: US-BAYER-201036626NA

PATIENT
  Sex: Female
  Weight: 86.168 kg

DRUGS (1)
  1. YAZ [Suspect]
     Dosage: UNK
     Route: 048
     Dates: start: 20041101, end: 20050101

REACTIONS (3)
  - MENTAL DISORDER [None]
  - CHOLELITHIASIS [None]
  - GALLBLADDER DISORDER [None]
